FAERS Safety Report 21994934 (Version 1)
Quarter: 2023Q1

REPORT INFORMATION
  Report Type: Spontaneous
  Country: US (occurrence: None)
  Receive Date: 20230214
  Receipt Date: 20230214
  Transmission Date: 20230417
  Serious: No
  Sender: FDA-Public Use
  Company Number: None

PATIENT
  Age: 77 Year
  Sex: Female

DRUGS (1)
  1. TREMFYA [Suspect]
     Active Substance: GUSELKUMAB
     Indication: Psoriasis
     Dosage: INJECT 100 UBCUTANEOUSLY  AT WEEK 0 AND WEEK 4 AS DIRECTED?
     Route: 058
     Dates: start: 202202

REACTIONS (2)
  - Respiratory tract infection [None]
  - Oropharyngeal pain [None]
